FAERS Safety Report 9619810 (Version 1)
Quarter: 2013Q4

REPORT INFORMATION
  Report Type: Spontaneous
  Country: US (occurrence: US)
  Receive Date: 20131014
  Receipt Date: 20131014
  Transmission Date: 20140711
  Serious: Yes (Other)
  Sender: FDA-Public Use
  Company Number: US-TEVA-437393USA

PATIENT
  Sex: Male

DRUGS (2)
  1. AMPHETAMINE W/DEXTROAMPHETAMINE [Suspect]
     Indication: ATTENTION DEFICIT/HYPERACTIVITY DISORDER
     Dosage: 60 MILLIGRAM DAILY;
     Route: 048
     Dates: start: 2005
  2. AMPHETAMINE W/DEXTROAMPHETAMINE [Suspect]
     Indication: BIPOLAR DISORDER

REACTIONS (9)
  - Drug withdrawal syndrome [Unknown]
  - Disturbance in attention [Unknown]
  - Feeling abnormal [Unknown]
  - Tachyphrenia [Unknown]
  - Hyperhidrosis [Unknown]
  - Cold sweat [Unknown]
  - Tremor [Unknown]
  - Dizziness [Unknown]
  - Mania [Unknown]
